FAERS Safety Report 8478347-1 (Version None)
Quarter: 2012Q2

REPORT INFORMATION
  Report Type: 
  Country: None (occurrence: None)
  Receive Date: 20120629
  Receipt Date: 20120623
  Transmission Date: 20120825
  Serious: Yes (Other)
  Sender: FDA-Public Use
  Company Number: US-BAYER-2012-063348

PATIENT

DRUGS (4)
  1. ALEVE (CAPLET) [Suspect]
     Indication: VAGINAL HAEMORRHAGE
  2. ANTIEMETICS AND ANTINAUSEANTS [Suspect]
  3. ALEVE (CAPLET) [Suspect]
     Indication: DISCOMFORT
  4. MIGRAINE MEDICATION [Suspect]

REACTIONS (1)
  - FEELING ABNORMAL [None]
